FAERS Safety Report 12583595 (Version 2)
Quarter: 2016Q3

REPORT INFORMATION
  Report Type: Spontaneous
  Country: TR (occurrence: TR)
  Receive Date: 20160722
  Receipt Date: 20160905
  Transmission Date: 20161109
  Serious: Yes (Life-Threatening, Hospitalization, Disabling)
  Sender: FDA-Public Use
  Company Number: TR-JNJFOC-20160715099

PATIENT
  Sex: Male

DRUGS (5)
  1. RISPERDAL [Suspect]
     Active Substance: RISPERIDONE
     Indication: BIPOLAR DISORDER
     Dosage: INITIATED 6 YEARS BEFORE THE TIME OF REPORT
     Route: 048
     Dates: start: 2010
  2. RISPERDAL [Suspect]
     Active Substance: RISPERIDONE
     Indication: AUTISM
     Dosage: INITIATED 6 YEARS BEFORE THE TIME OF REPORT
     Route: 048
     Dates: start: 2010
  3. DEPAKIN [Concomitant]
     Active Substance: VALPROATE SODIUM
     Route: 065
  4. RISPERDAL [Suspect]
     Active Substance: RISPERIDONE
     Indication: PARTIAL SEIZURES
     Dosage: INITIATED 6 YEARS BEFORE THE TIME OF REPORT
     Route: 048
     Dates: start: 2010
  5. RISPERDAL [Suspect]
     Active Substance: RISPERIDONE
     Indication: SCHIZOPHRENIA
     Dosage: INITIATED 6 YEARS BEFORE THE TIME OF REPORT
     Route: 048
     Dates: start: 2010

REACTIONS (6)
  - Cognitive disorder [Not Recovered/Not Resolved]
  - Inappropriate affect [Not Recovered/Not Resolved]
  - Soliloquy [Not Recovered/Not Resolved]
  - Hallucination [Not Recovered/Not Resolved]
  - Confusional state [Not Recovered/Not Resolved]
  - Drug ineffective [Unknown]
